FAERS Safety Report 6028168-4 (Version None)
Quarter: 2008Q4

REPORT INFORMATION
  Report Type: 
  Country: None (occurrence: None)
  Receive Date: 20081231
  Receipt Date: 20081231
  Transmission Date: 20090506
  Serious: Yes (Hospitalization)
  Sender: FDA-Public Use
  Company Number: None

PATIENT
  Age: 61 Year
  Sex: Female
  Weight: 50.3493 kg

DRUGS (14)
  1. COENZYME Q10 [Suspect]
     Indication: FATIGUE
     Dosage: 100MG TID PO
     Route: 048
     Dates: start: 20081031
  2. POTASSIUM CHLORIDE [Concomitant]
  3. LIBRAX [Concomitant]
  4. HYOSCYAMINE [Concomitant]
  5. CELEBREX [Concomitant]
  6. RESTORIL [Concomitant]
  7. PROMETHAZINE [Concomitant]
  8. EMEND [Concomitant]
  9. ONDANSETRON [Concomitant]
  10. PROCHLORPERAZINE [Concomitant]
  11. DEXAMETHASONE [Concomitant]
  12. NEULASTA [Concomitant]
  13. LORAZEPAM [Concomitant]
  14. GABAPENTIN [Concomitant]

REACTIONS (1)
  - FEBRILE NEUTROPENIA [None]
